FAERS Safety Report 10109789 (Version 3)
Quarter: 2014Q4

REPORT INFORMATION
  Report Type: Spontaneous
  Country: CN (occurrence: CN)
  Receive Date: 20140425
  Receipt Date: 20141125
  Transmission Date: 20150528
  Serious: Yes (Hospitalization)
  Sender: FDA-Public Use
  Company Number: CN-ASTRAZENECA-2014SE27173

PATIENT
  Age: 80 Year
  Sex: Male

DRUGS (3)
  1. NEXIUM [Suspect]
     Active Substance: ESOMEPRAZOLE MAGNESIUM
     Indication: GASTROOESOPHAGEAL REFLUX DISEASE
     Route: 048
     Dates: start: 20131018, end: 20131030
  2. NEXIUM [Suspect]
     Active Substance: ESOMEPRAZOLE MAGNESIUM
     Indication: GASTROOESOPHAGEAL REFLUX DISEASE
     Route: 048
     Dates: start: 20140416, end: 201404
  3. TRADITIONAL CHINESE MEDCINE [Concomitant]

REACTIONS (9)
  - Intentional product misuse [Unknown]
  - Pseudomembranous colitis [Not Recovered/Not Resolved]
  - Pyrexia [Unknown]
  - Haematochezia [Recovered/Resolved]
  - Allergic gastroenteritis [Unknown]
  - Urinary tract disorder [Unknown]
  - Clumsiness [Recovering/Resolving]
  - Vocal cord disorder [Unknown]
  - Abdominal discomfort [Unknown]

NARRATIVE: CASE EVENT DATE: 20131030
